FAERS Safety Report 16705924 (Version 2)
Quarter: 2019Q4

REPORT INFORMATION
  Report Type: Spontaneous
  Country: FR (occurrence: FR)
  Receive Date: 20190815
  Receipt Date: 20191003
  Transmission Date: 20200122
  Serious: Yes (Other)
  Sender: FDA-Public Use
  Company Number: FR-MYLANLABS-2019M1075160

PATIENT
  Age: 68 Year
  Sex: Female
  Weight: 52 kg

DRUGS (4)
  1. MEDROL [Suspect]
     Active Substance: METHYLPREDNISOLONE
     Indication: PREMEDICATION
     Dosage: UNK
     Route: 048
     Dates: start: 20190115, end: 20190214
  2. PACLITAXEL. [Suspect]
     Active Substance: PACLITAXEL
     Indication: BREAST CANCER
     Dosage: 1 DOSAGE FORM
     Route: 042
     Dates: start: 20190122, end: 20190205
  3. RANITIDINE. [Suspect]
     Active Substance: RANITIDINE
     Indication: PREMEDICATION
     Dosage: UNK
     Route: 048
     Dates: start: 20190115, end: 20190205
  4. HERCEPTIN [Suspect]
     Active Substance: TRASTUZUMAB
     Indication: CHEMOTHERAPY
     Dosage: UNK
     Route: 042
     Dates: start: 20190115, end: 20190214

REACTIONS (4)
  - Tachycardia [Recovered/Resolved]
  - Loss of consciousness [Recovered/Resolved]
  - Hyperthermia [Recovered/Resolved]
  - Malaise [Recovered/Resolved]

NARRATIVE: CASE EVENT DATE: 20190205
